FAERS Safety Report 18329403 (Version 1)
Quarter: 2020Q3

REPORT INFORMATION
  Report Type: Spontaneous
  Country: CA (occurrence: CA)
  Receive Date: 20200930
  Receipt Date: 20200930
  Transmission Date: 20201103
  Serious: Yes (Death)
  Sender: FDA-Public Use
  Company Number: CA-ACCORD-202963

PATIENT
  Age: 54 Year
  Sex: Female

DRUGS (5)
  1. LEVOTHYROXINE. [Concomitant]
     Active Substance: LEVOTHYROXINE
  2. ATORVASTATIN/ATORVASTATIN CALCIUM [Suspect]
     Active Substance: ATORVASTATIN CALCIUM
     Indication: BRAIN NEOPLASM MALIGNANT
     Dosage: ROUTE: INTRAVENOUS (NOT OTHERWISE SPECIFIED), 1 EVERY 2 WEEKS
  3. PROCARBAZINE [Concomitant]
     Active Substance: PROCARBAZINE
  4. PHENYTOIN. [Concomitant]
     Active Substance: PHENYTOIN
  5. ETOPOSIDE. [Suspect]
     Active Substance: ETOPOSIDE
     Indication: PRODUCT USED FOR UNKNOWN INDICATION
     Route: 065

REACTIONS (6)
  - Body temperature increased [Fatal]
  - Somnolence [Fatal]
  - Mobility decreased [Fatal]
  - Swelling [Fatal]
  - Terminal state [Fatal]
  - Off label use [Unknown]
